FAERS Safety Report 21378896 (Version 2)
Quarter: 2022Q4

REPORT INFORMATION
  Report Type: Report from Study
  Country: CA (occurrence: CA)
  Receive Date: 20220927
  Receipt Date: 20221125
  Transmission Date: 20230113
  Serious: Yes (Other)
  Sender: FDA-Public Use
  Company Number: CA-TEVA-2022-CA-2075859

PATIENT
  Sex: Female

DRUGS (3)
  1. OCTREOTIDE [Suspect]
     Active Substance: OCTREOTIDE
     Indication: Acromegaly
     Route: 030
     Dates: start: 20220415
  2. OCTREOTIDE [Suspect]
     Active Substance: OCTREOTIDE
     Route: 030
     Dates: start: 20220415
  3. Sando LAR [Concomitant]
     Indication: Product used for unknown indication

REACTIONS (7)
  - Atrial fibrillation [Unknown]
  - Ventricular extrasystoles [Unknown]
  - Heart rate irregular [Unknown]
  - Heart rate decreased [Unknown]
  - Pallor [Unknown]
  - Asthenia [Unknown]
  - Cystitis [Unknown]
